FAERS Safety Report 4832304-2 (Version None)
Quarter: 2005Q4

REPORT INFORMATION
  Report Type: 
  Country: None (occurrence: None)
  Receive Date: 20051116
  Receipt Date: 20051116
  Transmission Date: 20060501
  Serious: Yes (Other)
  Sender: FDA-Public Use
  Company Number: None

PATIENT
  Age: 10 Year
  Sex: Female
  Weight: 36.4 kg

DRUGS (15)
  1. FERRLECIT [Suspect]
     Indication: MINERAL SUPPLEMENTATION
     Dosage: 125MG, ONCE , INTRAVENOUS
     Route: 042
     Dates: start: 20051014
  2. CASPOFUNGIN [Concomitant]
  3. METHAXOLEN [Concomitant]
  4. ALBUMIN (HUMAN) [Concomitant]
  5. MYCOPHENOLATE MOFETIL [Concomitant]
  6. AZITHROMYCIN [Concomitant]
  7. PENICILLIN G POTASSIUM [Concomitant]
  8. DARBEPOETIN [Concomitant]
  9. ALBUTEROL [Concomitant]
  10. OXYCODONE [Concomitant]
  11. RABEPRAZOLE SODIUM [Concomitant]
  12. BACTRIM [Concomitant]
  13. METHYLPREDNISOLONE [Concomitant]
  14. DOCUSATE/SENNA [Concomitant]
  15. FLINTSTONES [Concomitant]

REACTIONS (4)
  - BURNING SENSATION [None]
  - FEELING ABNORMAL [None]
  - INFUSION RELATED REACTION [None]
  - URTICARIA [None]
